FAERS Safety Report 25597448 (Version 1)
Quarter: 2025Q3

REPORT INFORMATION
  Report Type: Spontaneous
  Country: JP (occurrence: JP)
  Receive Date: 20250723
  Receipt Date: 20250723
  Transmission Date: 20251021
  Serious: Yes (Life-Threatening, Hospitalization)
  Sender: PURDUE
  Company Number: JP-MLMSERVICE-20250709-PI571783-00229-1

PATIENT
  Age: 25 Year
  Sex: Male
  Weight: 72 kg

DRUGS (5)
  1. MORPHINE SULFATE [Suspect]
     Active Substance: MORPHINE SULFATE
     Indication: Analgesic therapy
     Route: 008
  2. MORPHINE SULFATE [Suspect]
     Active Substance: MORPHINE SULFATE
     Indication: Postoperative analgesia
     Dosage: 4 MILLIGRAM, DAILY  (POSTOPERATIVE ANALGESIA: CONTINUOUS EPIDURAL INFUSION OF MORPHINE AT 4 MG/DAY C
     Route: 008
  3. MORPHINE SULFATE [Suspect]
     Active Substance: MORPHINE SULFATE
     Indication: Analgesic therapy
     Route: 008
  4. MORPHINE SULFATE [Suspect]
     Active Substance: MORPHINE SULFATE
     Indication: Postoperative analgesia
     Dosage: 4 MILLIGRAM, DAILY  (POSTOPERATIVE ANALGESIA: CONTINUOUS EPIDURAL INFUSION OF MORPHINE AT 4 MG/DAY C
     Route: 008
  5. ROPIVACAINE [Concomitant]
     Active Substance: ROPIVACAINE
     Indication: Postoperative analgesia
     Route: 008

REACTIONS (3)
  - Gastrointestinal necrosis [Recovered/Resolved]
  - Ileus paralytic [Recovered/Resolved]
  - Pneumoperitoneum [Recovered/Resolved]
